FAERS Safety Report 6345534-8 (Version None)
Quarter: 2009Q3

REPORT INFORMATION
  Report Type: 
  Country: None (occurrence: None)
  Receive Date: 20090821
  Receipt Date: 20090520
  Transmission Date: 20100115
  Serious: No
  Sender: FDA-Public Use
  Company Number: 8046592

PATIENT
  Age: 29 Year
  Sex: Female
  Weight: 64.1 kg

DRUGS (7)
  1. CIMZIA [Suspect]
     Indication: CROHN'S DISEASE
     Dosage: 400 MG SC
     Route: 058
     Dates: start: 20081211
  2. AMITRIPTYLINE [Concomitant]
  3. LISINOPRIL [Concomitant]
  4. MULTI-VITAMINS [Concomitant]
  5. VITAMIN D [Concomitant]
  6. CALCIUM CITRATE [Concomitant]
  7. VITAMIN B-12 [Concomitant]

REACTIONS (2)
  - DRUG DOSE OMISSION [None]
  - PLATELET COUNT DECREASED [None]
